FAERS Safety Report 25855243 (Version 2)
Quarter: 2025Q4

REPORT INFORMATION
  Report Type: Report from Study
  Country: EU (occurrence: EU)
  Receive Date: 20250927
  Receipt Date: 20251023
  Transmission Date: 20260117
  Serious: Yes (Hospitalization)
  Sender: ABBVIE
  Company Number: EU-ABBVIE-6476237

PATIENT
  Sex: Male

DRUGS (1)
  1. FOSCARBIDOPA\FOSLEVODOPA [Suspect]
     Active Substance: FOSCARBIDOPA\FOSLEVODOPA
     Indication: Parkinson^s disease
     Dosage: CRN: 0.15 ML/H, CR: 0.15 ML/H, CRH: 0.20 ML/H, ED: 0.10 ML
     Route: 058
     Dates: start: 20240813

REACTIONS (3)
  - Knee operation [Recovering/Resolving]
  - Hypokinesia [Not Recovered/Not Resolved]
  - Hallucination [Unknown]
